FAERS Safety Report 24942984 (Version 1)
Quarter: 2025Q1

REPORT INFORMATION
  Report Type: Spontaneous
  Country: GB (occurrence: GB)
  Receive Date: 20250207
  Receipt Date: 20250207
  Transmission Date: 20250409
  Serious: Yes (Other)
  Sender: B BRAUN
  Company Number: GB-B.Braun Medical Inc.-2170671

PATIENT
  Age: 60 Year
  Sex: Female
  Weight: 97 kg

DRUGS (37)
  1. METRONIDAZOLE [Suspect]
     Active Substance: METRONIDAZOLE
     Indication: Rheumatoid arthritis
  2. BISOPROLOL FUMARATE [Suspect]
     Active Substance: BISOPROLOL FUMARATE
  3. ERYTHROMYCIN [Suspect]
     Active Substance: ERYTHROMYCIN
  4. HYDROXYCHLOROQUINE SULFATE [Suspect]
     Active Substance: HYDROXYCHLOROQUINE SULFATE
  5. PREDNISONE [Suspect]
     Active Substance: PREDNISONE
  6. LEFLUNOMIDE [Suspect]
     Active Substance: LEFLUNOMIDE
  7. DICLOFENAC SODIUM\MISOPROSTOL [Suspect]
     Active Substance: DICLOFENAC SODIUM\MISOPROSTOL
  8. MISOPROSTOL [Suspect]
     Active Substance: MISOPROSTOL
  9. ERYTHROMYCIN STEARATE [Suspect]
     Active Substance: ERYTHROMYCIN STEARATE
  10. LEVOFLOXACIN [Suspect]
     Active Substance: LEVOFLOXACIN
  11. ERYTHROMYCIN ESTOLATE [Suspect]
     Active Substance: ERYTHROMYCIN ESTOLATE
  12. MEPERIDINE HYDROCHLORIDE [Suspect]
     Active Substance: MEPERIDINE HYDROCHLORIDE
  13. DICLOFENAC SODIUM\MISOPROSTOL [Suspect]
     Active Substance: DICLOFENAC SODIUM\MISOPROSTOL
  14. LEVOFLOXACIN [Suspect]
     Active Substance: LEVOFLOXACIN
  15. NORFLOXACIN [Suspect]
     Active Substance: NORFLOXACIN
  16. LYRICA [Suspect]
     Active Substance: PREGABALIN
  17. ARAVA [Suspect]
     Active Substance: LEFLUNOMIDE
  18. ERYTHROMYCIN [Suspect]
     Active Substance: ERYTHROMYCIN
  19. DEMEROL [Suspect]
     Active Substance: MEPERIDINE HYDROCHLORIDE
  20. CECLOR [Suspect]
     Active Substance: CEFACLOR
  21. PLAQUENIL [Suspect]
     Active Substance: HYDROXYCHLOROQUINE SULFATE
  22. HUMIRA [Suspect]
     Active Substance: ADALIMUMAB
  23. ARTHROTEC [Suspect]
     Active Substance: DICLOFENAC SODIUM\MISOPROSTOL
  24. SULFASALAZINE [Suspect]
     Active Substance: SULFASALAZINE
  25. MEPERIDINE HYDROCHLORIDE [Suspect]
     Active Substance: MEPERIDINE HYDROCHLORIDE
  26. PREDNISONE [Suspect]
     Active Substance: PREDNISONE
  27. CELECOXIB [Suspect]
     Active Substance: CELECOXIB
  28. PREGABALIN [Suspect]
     Active Substance: PREGABALIN
  29. PREGABALIN [Suspect]
     Active Substance: PREGABALIN
  30. HYRIMOZ [Suspect]
     Active Substance: ADALIMUMAB-ADAZ
  31. ADALIMUMAB [Suspect]
     Active Substance: ADALIMUMAB
  32. LEVOFLOXACIN [Suspect]
     Active Substance: LEVOFLOXACIN
  33. DICLOFENAC SODIUM [Suspect]
     Active Substance: DICLOFENAC SODIUM
  34. BISOPROLOL FUMARATE [Suspect]
     Active Substance: BISOPROLOL FUMARATE
  35. DICLOFENAC POTASSIUM [Suspect]
     Active Substance: DICLOFENAC POTASSIUM
  36. METHOTREXATE [Suspect]
     Active Substance: METHOTREXATE
  37. LEFLUNOMIDE [Suspect]
     Active Substance: LEFLUNOMIDE

REACTIONS (21)
  - Staphylococcal infection [Not Recovered/Not Resolved]
  - Off label use [Not Recovered/Not Resolved]
  - Therapeutic product effect incomplete [Not Recovered/Not Resolved]
  - Drug intolerance [Not Recovered/Not Resolved]
  - Dizziness [Not Recovered/Not Resolved]
  - Vomiting [Not Recovered/Not Resolved]
  - Nausea [Not Recovered/Not Resolved]
  - Fatigue [Not Recovered/Not Resolved]
  - Malaise [Not Recovered/Not Resolved]
  - Secretion discharge [Not Recovered/Not Resolved]
  - Red blood cell sedimentation rate increased [Not Recovered/Not Resolved]
  - Iron deficiency [Not Recovered/Not Resolved]
  - Hypoaesthesia [Not Recovered/Not Resolved]
  - Drug hypersensitivity [Not Recovered/Not Resolved]
  - Bloody discharge [Not Recovered/Not Resolved]
  - Lyme disease [Not Recovered/Not Resolved]
  - International normalised ratio fluctuation [Not Recovered/Not Resolved]
  - Infection [Not Recovered/Not Resolved]
  - Pain in extremity [Not Recovered/Not Resolved]
  - Drug ineffective [Not Recovered/Not Resolved]
  - Platelet count increased [Not Recovered/Not Resolved]
